FAERS Safety Report 21287986 (Version 1)
Quarter: 2022Q3

REPORT INFORMATION
  Report Type: Spontaneous
  Country: US (occurrence: US)
  Receive Date: 20220902
  Receipt Date: 20220902
  Transmission Date: 20221027
  Serious: Yes (Other)
  Sender: FDA-Public Use
  Company Number: US-ABBVIE-22K-163-4494639-00

PATIENT
  Age: 51 Year
  Sex: Male
  Weight: 58.566 kg

DRUGS (7)
  1. VENCLEXTA [Suspect]
     Active Substance: VENETOCLAX
     Indication: Chronic lymphocytic leukaemia
     Dosage: DAY 1-7
     Route: 048
     Dates: end: 20220711
  2. VENCLEXTA [Suspect]
     Active Substance: VENETOCLAX
     Dosage: DAY 8-14
     Route: 048
     Dates: start: 20220712, end: 20220718
  3. VENCLEXTA [Suspect]
     Active Substance: VENETOCLAX
     Dosage: DAYS 15-21
     Route: 048
     Dates: start: 20220719, end: 20220725
  4. VENCLEXTA [Suspect]
     Active Substance: VENETOCLAX
     Dosage: DAYS 22-28
     Route: 048
     Dates: start: 20220726, end: 20220801
  5. GAZYVA [Suspect]
     Active Substance: OBINUTUZUMAB
     Indication: Chronic lymphocytic leukaemia
     Route: 065
     Dates: start: 20220607, end: 20220627
  6. ALLOPURINOL [Concomitant]
     Active Substance: ALLOPURINOL
     Indication: Gout
     Route: 048
  7. COMPAZINE [Concomitant]
     Active Substance: PROCHLORPERAZINE MALEATE
     Indication: Nausea
     Route: 048

REACTIONS (1)
  - Neutropenia [Not Recovered/Not Resolved]

NARRATIVE: CASE EVENT DATE: 20220701
